FAERS Safety Report 6310777-6 (Version None)
Quarter: 2009Q3

REPORT INFORMATION
  Report Type: 
  Country: None (occurrence: None)
  Receive Date: 20090812
  Receipt Date: 20090728
  Transmission Date: 20100115
  Serious: Yes (Other)
  Sender: FDA-Public Use
  Company Number: 1000006645

PATIENT
  Sex: Male

DRUGS (5)
  1. LEXAPRO [Suspect]
     Dosage: 5 MG (5 MG, 1 IN 1 D), TRANSPLACENTAL, 5 MG (5 MG, 1 IN 1 D), TRANSAMMARY
     Route: 064
     Dates: start: 20080901, end: 20090523
  2. LEXAPRO [Suspect]
     Dosage: 5 MG (5 MG, 1 IN 1 D), TRANSPLACENTAL, 5 MG (5 MG, 1 IN 1 D), TRANSAMMARY
     Route: 064
     Dates: start: 20090524
  3. LEVOTHYROXINE [Concomitant]
  4. VITAMIN TAB [Concomitant]
  5. PULMICORT-100 [Concomitant]

REACTIONS (5)
  - CAESAREAN SECTION [None]
  - CONGENITAL PYELOCALIECTASIS [None]
  - DRUG EXPOSURE VIA BREAST MILK [None]
  - HYDRONEPHROSIS [None]
  - MATERNAL DRUGS AFFECTING FOETUS [None]
